FAERS Safety Report 4750302-4 (Version None)
Quarter: 2005Q3

REPORT INFORMATION
  Report Type: 
  Country: None (occurrence: None)
  Receive Date: 20050818
  Receipt Date: 20050809
  Transmission Date: 20060218
  Serious: Yes (Hospitalization, Other)
  Sender: FDA-Public Use
  Company Number: 2005113428

PATIENT
  Age: 41 Year
  Sex: Female
  Weight: 63.5036 kg

DRUGS (18)
  1. DEPO-PROVERA [Suspect]
     Indication: CONTRACEPTION
     Dosage: (CYCLIC INTERVAL: EVERY 3 MONTHS)
  2. ACTONEL [Concomitant]
  3. CALCIUM  (CALCIUM) [Concomitant]
  4. VITAMIN D [Concomitant]
  5. VICODIN [Concomitant]
  6. NEURONTIN [Concomitant]
  7. NAPOSYN (NAPROXEN) [Concomitant]
  8. CHRONULAC (LACTULOSE) [Concomitant]
  9. PARAFON FORTE (CHLORZOXAZONE, PARACETAMOL) [Concomitant]
  10. QUININE SULFATE [Concomitant]
  11. ADVAIR (FLUTICASONE PROPIOANTE, SALMETEROL XINAFOATE) [Concomitant]
  12. NEXIUM [Concomitant]
  13. SINEMET CR [Concomitant]
  14. PROZAC [Concomitant]
  15. ALBUTEROL [Concomitant]
  16. TRAZODONE HCL [Concomitant]
  17. PERCOCET [Concomitant]
  18. VALIUM [Concomitant]

REACTIONS (12)
  - ARTHROPATHY [None]
  - DYSPNOEA [None]
  - FOOT FRACTURE [None]
  - GASTROOESOPHAGEAL REFLUX DISEASE [None]
  - INSOMNIA [None]
  - INTERVERTEBRAL DISC DISORDER [None]
  - LIGAMENT DISORDER [None]
  - MIGRAINE [None]
  - OSTEOPENIA [None]
  - PAIN [None]
  - SPINAL FRACTURE [None]
  - STRESS FRACTURE [None]
